FAERS Safety Report 21075376 (Version 2)
Quarter: 2022Q3

REPORT INFORMATION
  Report Type: Spontaneous
  Country: CN (occurrence: CN)
  Receive Date: 20220713
  Receipt Date: 20220722
  Transmission Date: 20221026
  Serious: Yes (Other)
  Sender: FDA-Public Use
  Company Number: None

PATIENT
  Age: 50 Year
  Sex: Female
  Weight: 50 kg

DRUGS (4)
  1. CYCLOPHOSPHAMIDE [Suspect]
     Active Substance: CYCLOPHOSPHAMIDE
     Indication: Breast cancer female
     Dosage: 750 MG, QD (RECEIVED INTRAVENOUS INJECTION OF CYCLOPHOSPHAMIDE FOR INJECTION (ENDOXAN CTX) 750 MG +
     Route: 042
     Dates: start: 20220419, end: 20220419
  2. SODIUM CHLORIDE [Suspect]
     Active Substance: SODIUM CHLORIDE
     Indication: Medication dilution
     Dosage: 40 ML, QD INTRAVENOUS INJECTION OF CYCLOPHOSPHAMIDE FOR INJECTION (ENDOXAN CTX) 750 MG + NS 40ML
     Route: 042
     Dates: start: 20220419, end: 20220419
  3. SODIUM CHLORIDE [Suspect]
     Active Substance: SODIUM CHLORIDE
     Dosage: 100 ML, QD INTRAVENOUS DRIP OF EPIRUBICIN HYDROCHLORIDE FOR INJECTION (AIDASHENG) 115 MG + NS 100ML
     Route: 041
     Dates: start: 20220419, end: 20220419
  4. EPIRUBICIN HYDROCHLORIDE [Suspect]
     Active Substance: EPIRUBICIN HYDROCHLORIDE
     Indication: Breast cancer female
     Dosage: 115 MG, QD (INTRAVENOUS DRIP OF EPIRUBICIN HYDROCHLORIDE FOR INJECTION (AIDASHENG) 115 MG + NS 100ML
     Route: 041
     Dates: start: 20220419, end: 20220419

REACTIONS (2)
  - White blood cell count decreased [Recovered/Resolved]
  - Agranulocytosis [Recovered/Resolved]

NARRATIVE: CASE EVENT DATE: 20220429
